FAERS Safety Report 5912530-1 (Version None)
Quarter: 2008Q4

REPORT INFORMATION
  Report Type: 
  Country: None (occurrence: None)
  Receive Date: 20081006
  Receipt Date: 20080805
  Transmission Date: 20090506
  Serious: Yes (Disabling)
  Sender: FDA-Public Use
  Company Number: US024699

PATIENT
  Age: 68 Year
  Sex: Male

DRUGS (8)
  1. TRISENOX [Suspect]
     Indication: ACUTE PROMYELOCYTIC LEUKAEMIA
     Dosage: 12.3 MG QD INTRAVENOUS DRIP
     Route: 041
     Dates: start: 20070524, end: 20070618
  2. CYTARABINE [Concomitant]
  3. DAUNORUBICIN HCL [Concomitant]
  4. LANATOSIDE C [Concomitant]
  5. HYDROCORTISONE SODIUM SUCCINATE [Concomitant]
  6. FUROSEMIDE [Concomitant]
  7. ELECTROLYTE [Concomitant]
  8. ELECTROLYTE [Concomitant]

REACTIONS (4)
  - ELECTROCARDIOGRAM QT PROLONGED [None]
  - PERICARDIAL EFFUSION [None]
  - PLEURAL EFFUSION [None]
  - VENTRICULAR TACHYCARDIA [None]
